FAERS Safety Report 24158156 (Version 1)
Quarter: 2024Q3

REPORT INFORMATION
  Report Type: Spontaneous
  Country: US (occurrence: None)
  Receive Date: 20240731
  Receipt Date: 20240731
  Transmission Date: 20241017
  Serious: Yes (Hospitalization)
  Sender: Public
  Company Number: None

PATIENT
  Age: 51 Year
  Sex: Female
  Weight: 72 kg

DRUGS (5)
  1. HUMIRA [Suspect]
     Active Substance: ADALIMUMAB
     Indication: Colitis ulcerative
     Dosage: 40 MG/ML Q 2 WKS SUBCUTANEOUS ?
     Route: 058
     Dates: start: 20220907
  2. CRESTOR [Concomitant]
  3. METFORMIN [Concomitant]
  4. SITAGLIPTIN [Concomitant]
  5. VITAMIN D3 [Concomitant]

REACTIONS (16)
  - Asthenia [None]
  - Dyspnoea [None]
  - Respiratory distress [None]
  - Mental status changes [None]
  - Respiratory failure [None]
  - White blood cell count increased [None]
  - Hypokinesia [None]
  - Sputum culture positive [None]
  - Escherichia test positive [None]
  - Klebsiella test positive [None]
  - Abdominal distension [None]
  - Pneumatosis [None]
  - Dilated cardiomyopathy [None]
  - Acute myocardial infarction [None]
  - Pneumonia legionella [None]
  - Pulmonary embolism [None]

NARRATIVE: CASE EVENT DATE: 20240603
